FAERS Safety Report 9816448 (Version 2)
Quarter: 2014Q1

REPORT INFORMATION
  Report Type: Spontaneous
  Country: US (occurrence: US)
  Receive Date: 20140114
  Receipt Date: 20140114
  Transmission Date: 20141002
  Serious: Yes (Hospitalization)
  Sender: FDA-Public Use
  Company Number: US-B.I. PHARMACEUTICALS,INC./RIDGEFIELD-2013-BI-22820BP

PATIENT
  Age: 80 Year
  Sex: Male
  Weight: 74.84 kg

DRUGS (15)
  1. PRADAXA [Suspect]
     Indication: ATRIAL FIBRILLATION
     Dosage: 300 MG
     Dates: start: 20120312, end: 20121117
  2. CRESTOR [Concomitant]
     Dosage: 10 MG
     Dates: start: 2003
  3. METFORMIN [Concomitant]
     Dosage: 500 MG
     Dates: start: 2012
  4. TRAMADOL [Concomitant]
     Dates: start: 201105
  5. DIGOXIN [Concomitant]
     Dosage: 0.125 MG
     Route: 048
     Dates: start: 2001
  6. LOTENSIN [Concomitant]
     Route: 048
     Dates: start: 2000
  7. OSTEO BI FLEX [Concomitant]
  8. CLONAZEPAM [Concomitant]
     Dosage: 2 MG
     Route: 048
  9. LEXAPRO [Concomitant]
     Dosage: 10 MG
     Route: 048
  10. SELENIUM [Concomitant]
     Dosage: 50 MCG
     Route: 048
  11. ASPIRIN [Concomitant]
     Dosage: 81 MCG
     Route: 048
  12. CHROMIUM PICOLINATE [Concomitant]
     Dosage: 200 MG
     Route: 048
  13. CENTRUM SILVER [Concomitant]
  14. COREG [Concomitant]
     Dosage: 50 MG
  15. GLUCOSAMINE [Concomitant]

REACTIONS (4)
  - Lower gastrointestinal haemorrhage [Unknown]
  - Haemorrhagic anaemia [Unknown]
  - Coagulopathy [Unknown]
  - Renal failure acute [Unknown]
